FAERS Safety Report 7400069-6 (Version None)
Quarter: 2011Q2

REPORT INFORMATION
  Report Type: 
  Country: None (occurrence: None)
  Receive Date: 20110405
  Receipt Date: 20110405
  Transmission Date: 20111010
  Serious: Yes (Life-Threatening)
  Sender: FDA-Public Use
  Company Number: None

PATIENT
  Sex: Female
  Weight: 131.5431 kg

DRUGS (2)
  1. DILTIAZEM [Suspect]
     Indication: CHEST PAIN
     Dosage: TWO TABLET BY MOUTH ONCE A DAY
     Route: 048
     Dates: start: 20110304, end: 20110308
  2. DILTIAZEM [Suspect]
     Indication: HYPERTENSION
     Dosage: ONE TABLET BY MOUTH ONCE A DAY
     Route: 048
     Dates: start: 20110207, end: 20110304

REACTIONS (6)
  - NO THERAPEUTIC RESPONSE [None]
  - DIZZINESS [None]
  - PRURITUS [None]
  - URTICARIA [None]
  - DYSPNOEA [None]
  - THERAPY REGIMEN CHANGED [None]
